FAERS Safety Report 9107702 (Version 1)
Quarter: 2013Q1

REPORT INFORMATION
  Report Type: Spontaneous
  Country: US (occurrence: US)
  Receive Date: 20130222
  Receipt Date: 20130222
  Transmission Date: 20140127
  Serious: No
  Sender: FDA-Public Use
  Company Number: US-TEVA-350401USA

PATIENT
  Sex: 0

DRUGS (1)
  1. TREANDA [Suspect]
     Dates: start: 2012

REACTIONS (1)
  - Drug ineffective [Unknown]
